FAERS Safety Report 8574801-2 (Version None)
Quarter: 2012Q3

REPORT INFORMATION
  Report Type: 
  Country: None (occurrence: None)
  Receive Date: 20120807
  Receipt Date: 20120730
  Transmission Date: 20120928
  Serious: Yes (Life-Threatening, Hospitalization, Other)
  Sender: FDA-Public Use
  Company Number: CZ-BRISTOL-MYERS SQUIBB COMPANY-16818684

PATIENT
  Age: 47 Year
  Sex: Female
  Weight: 57 kg

DRUGS (5)
  1. RANITAL [Concomitant]
     Indication: PREMEDICATION
     Route: 042
  2. TAXOL [Suspect]
     Route: 041
     Dates: start: 20120724, end: 20120724
  3. DITHIADEN [Concomitant]
     Indication: PREMEDICATION
     Route: 051
  4. ZOFRAN [Concomitant]
     Indication: PROPHYLAXIS OF NAUSEA AND VOMITING
     Route: 042
  5. DEXAMETHASONE [Concomitant]
     Indication: PREMEDICATION

REACTIONS (5)
  - CYANOSIS [None]
  - BRONCHOSPASM [None]
  - UTERINE PROLAPSE [None]
  - DYSPNOEA [None]
  - LOSS OF CONSCIOUSNESS [None]
